FAERS Safety Report 16487335 (Version 1)
Quarter: 2019Q3

REPORT INFORMATION
  Report Type: Spontaneous
  Country: US (occurrence: US)
  Receive Date: 20190626
  Receipt Date: 20190626
  Transmission Date: 20191004
  Serious: Yes (Hospitalization)
  Sender: FDA-Public Use
  Company Number: None

PATIENT
  Age: 51 Year
  Sex: Female

DRUGS (3)
  1. IBUPROFEN 1600 MG [Concomitant]
  2. PALBOCICLIB [Suspect]
     Active Substance: PALBOCICLIB
     Indication: BREAST CANCER METASTATIC
     Route: 048
     Dates: start: 20190129, end: 20190209
  3. EXEMESTANE 25 MG DAILY [Concomitant]
     Dates: start: 20180227

REACTIONS (16)
  - Dizziness [None]
  - Fatigue [None]
  - Ecchymosis [None]
  - Haemoglobin decreased [None]
  - Haemolysis [None]
  - Acute kidney injury [None]
  - Red blood cell schistocytes present [None]
  - Malignant neoplasm progression [None]
  - Rales [None]
  - Disease progression [None]
  - Pulmonary oedema [None]
  - Wheezing [None]
  - Dehydration [None]
  - Hypothyroidism [None]
  - Dyspnoea [None]
  - Multiple organ dysfunction syndrome [None]

NARRATIVE: CASE EVENT DATE: 20190209
